FAERS Safety Report 11122115 (Version 1)
Quarter: 2015Q2

REPORT INFORMATION
  Report Type: Spontaneous
  Country: CH (occurrence: CH)
  Receive Date: 20150519
  Receipt Date: 20150519
  Transmission Date: 20150821
  Serious: Yes (Other)
  Sender: FDA-Public Use
  Company Number: CH-PFIZER INC-2015164729

PATIENT
  Age: 70 Year
  Sex: Female

DRUGS (18)
  1. METOCLOPRAMID [Interacting]
     Active Substance: METOCLOPRAMIDE
     Dosage: UNK
     Route: 048
     Dates: start: 20150210
  2. IPRATROPIUM BROMIDE W/SALBUTAMOL [Concomitant]
     Dosage: 1 DF, 2X/DAY
  3. AZITHROMYCIN [Concomitant]
     Active Substance: AZITHROMYCIN ANHYDROUS
     Dosage: 250 MG, 1X/DAY
  4. ENOXAPARIN [Concomitant]
     Active Substance: ENOXAPARIN
     Dosage: 40 MG, 1X/DAY
  5. HYDROXYZINE [Concomitant]
     Active Substance: HYDROXYZINE\HYDROXYZINE HYDROCHLORIDE
     Dosage: 25 MG, 2X/DAY
  6. MAGALDRATE [Concomitant]
     Active Substance: MAGALDRATE
     Dosage: 800 MG, 3X/DAY
  7. VENLAFAXINE HCL [Interacting]
     Active Substance: VENLAFAXINE HYDROCHLORIDE
     Dosage: UNK
     Route: 048
     Dates: start: 20150207
  8. LORAZEPAM. [Concomitant]
     Active Substance: LORAZEPAM
     Dosage: 0.5 MG, AS RESERVE MEDICATION
  9. MAGNESIUM [Concomitant]
     Active Substance: MAGNESIUM
     Dosage: 5 MMOL, 1X/DAY
  10. FLUTICASONE W/SALMETEROL [Concomitant]
     Active Substance: FLUTICASONE PROPIONATE\SALMETEROL XINAFOATE
     Dosage: 1 DF (HUB), 2X/DAY
  11. ESOMEPRAZOLE [Concomitant]
     Active Substance: ESOMEPRAZOLE
     Dosage: 40 MG, 1X/DAY
  12. VENLAFAXINE HCL [Suspect]
     Active Substance: VENLAFAXINE HYDROCHLORIDE
     Dosage: 37.5 MG, 2X/DAY
     Route: 048
     Dates: start: 20150205, end: 20150206
  13. TRAMADOL [Interacting]
     Active Substance: TRAMADOL
     Dosage: 12.5 MG, 2X/DAY
     Route: 048
     Dates: start: 20150129, end: 20150209
  14. METOCLOPRAMID [Interacting]
     Active Substance: METOCLOPRAMIDE
     Dosage: 10 MG, 2X/DAY
     Route: 048
     Dates: start: 20150129, end: 20150209
  15. TIOTROPIUM [Concomitant]
     Active Substance: TIOTROPIUM
     Dosage: 18 ?G, 1X/DAY
  16. ASPIRIN. [Concomitant]
     Active Substance: ASPIRIN
     Dosage: 100 MG, 1X/DAY
  17. MIRTAZAPIN [Concomitant]
     Active Substance: MIRTAZAPINE
     Dosage: 30 MG, 1X/DAY
     Dates: end: 20150204
  18. PARACETAMOL [Concomitant]
     Active Substance: ACETAMINOPHEN
     Dosage: UNK, AS RESERVE MEDICATION

REACTIONS (2)
  - Serotonin syndrome [Unknown]
  - Drug interaction [Unknown]

NARRATIVE: CASE EVENT DATE: 20150207
